FAERS Safety Report 9374652 (Version 2)
Quarter: 2013Q3

REPORT INFORMATION
  Report Type: Spontaneous
  Country: JP (occurrence: None)
  Receive Date: 20130624
  Receipt Date: 20130802
  Transmission Date: 20140515
  Serious: Yes (Other)
  Sender: FDA-Public Use
  Company Number: TCI2013A03353

PATIENT
  Age: 45 Year
  Sex: Male

DRUGS (9)
  1. NESINA [Suspect]
     Indication: DIABETES MELLITUS
     Dosage: 25 MG, 1 IN 1 D
     Route: 048
     Dates: start: 20130525, end: 20130606
  2. GASMOTIN POWDER(MOSAPRIDE CITRATE) [Concomitant]
  3. URSO(URSODEOXYCHOLIC ACID) [Concomitant]
  4. MUCOSTA(REBAMIPIDE) [Concomitant]
  5. LENDORMIN(BROTIZOLAM) [Concomitant]
  6. ROHYPNOL(FLUNITRAZEPAM) [Concomitant]
  7. ALOSENN [Concomitant]
  8. XYZAL [Concomitant]
  9. HERBAL EXTRACT NOS [Concomitant]

REACTIONS (2)
  - Rhabdomyolysis [None]
  - Hepatic function abnormal [None]
